FAERS Safety Report 8470996-X (Version None)
Quarter: 2012Q2

REPORT INFORMATION
  Report Type: 
  Country: None (occurrence: None)
  Receive Date: 20120627
  Receipt Date: 20120620
  Transmission Date: 20120825
  Serious: Yes (Hospitalization)
  Sender: FDA-Public Use
  Company Number: CA-ELI_LILLY_AND_COMPANY-CA201206007059

PATIENT
  Age: 71 Year
  Sex: Female

DRUGS (6)
  1. TYLENOL                                 /SCH/ [Concomitant]
     Dosage: UNK, PRN
  2. FORTEO [Suspect]
     Indication: OSTEOPOROSIS
     Dosage: 20 UG, QD
     Route: 058
     Dates: start: 20101211
  3. VITALUX [Concomitant]
  4. PREDNISONE TAB [Concomitant]
     Dosage: 5 MG, UNK
  5. ASPIRIN [Concomitant]
     Dosage: 81 MG, UNK
  6. CALCIUM + VITAMIN D [Concomitant]

REACTIONS (1)
  - HERNIA [None]
